FAERS Safety Report 19115579 (Version 1)
Quarter: 2021Q2

REPORT INFORMATION
  Report Type: Spontaneous
  Country: GR (occurrence: GR)
  Receive Date: 20210409
  Receipt Date: 20210409
  Transmission Date: 20210717
  Serious: Yes (Hospitalization)
  Sender: FDA-Public Use
  Company Number: GR-AMNEAL PHARMACEUTICALS-2021-AMRX-01197

PATIENT
  Age: 64 Year
  Sex: Male

DRUGS (1)
  1. RISPERIDONE. [Suspect]
     Active Substance: RISPERIDONE
     Indication: PARANOIA
     Dosage: 3 MILLIGRAM, DAILY
     Route: 065

REACTIONS (1)
  - Eosinophilic pneumonia acute [Recovered/Resolved]
